FAERS Safety Report 9285386 (Version 2)
Quarter: 2013Q2

REPORT INFORMATION
  Report Type: Spontaneous
  Country: GB (occurrence: GB)
  Receive Date: 20130513
  Receipt Date: 20130513
  Transmission Date: 20140414
  Serious: Yes (Other)
  Sender: FDA-Public Use
  Company Number: GB-JNJFOC-20130317933

PATIENT
  Age: 30 Year
  Sex: Female

DRUGS (2)
  1. NICORETTE INVISIPATCH 25MG/16H [Suspect]
     Route: 062
  2. NICORETTE INVISIPATCH 25MG/16H [Suspect]
     Indication: SMOKING CESSATION THERAPY
     Route: 062
     Dates: start: 20130414, end: 20130428

REACTIONS (8)
  - Skin haemorrhage [Recovered/Resolved]
  - Thermal burn [Recovered/Resolved]
  - Application site erosion [Recovered/Resolved]
  - Application site rash [Recovered/Resolved]
  - Application site pruritus [Not Recovered/Not Resolved]
  - Thermal burn [None]
  - Application site erosion [None]
  - Application site erythema [None]
